FAERS Safety Report 4353748-1 (Version None)
Quarter: 2004Q2

REPORT INFORMATION
  Report Type: 
  Country: None (occurrence: None)
  Receive Date: 20040505
  Receipt Date: 20040426
  Transmission Date: 20050107
  Serious: Yes (Hospitalization, Other)
  Sender: FDA-Public Use
  Company Number: US-MERCK-0404USA02274

PATIENT
  Age: 46 Year
  Sex: Female

DRUGS (6)
  1. CALCIUM CARBONATE [Concomitant]
     Route: 065
     Dates: start: 20030915, end: 20030915
  2. DIPHENHYDRAMINE HYDROCHLORIDE [Concomitant]
     Route: 065
     Dates: start: 20030908, end: 20030908
  3. IBUPROFEN [Concomitant]
     Route: 065
     Dates: start: 20030915, end: 20030915
  4. MEVACOR [Suspect]
     Indication: HYPERCHOLESTEROLAEMIA
     Route: 048
     Dates: start: 20030701, end: 20031008
  5. ONE-A-DAY WOMEN'S [Concomitant]
     Route: 065
     Dates: start: 20030701
  6. PLACEBO (UNSPECIFIED) [Suspect]
     Indication: MENOPAUSAL SYMPTOMS
     Route: 048
     Dates: start: 20030927, end: 20031008

REACTIONS (6)
  - ALANINE AMINOTRANSFERASE INCREASED [None]
  - APPENDICITIS [None]
  - ASPARTATE AMINOTRANSFERASE INCREASED [None]
  - BLOOD ALKALINE PHOSPHATASE INCREASED [None]
  - DYSPEPSIA [None]
  - PAIN IN EXTREMITY [None]
